FAERS Safety Report 4618167-9 (Version None)
Quarter: 2005Q1

REPORT INFORMATION
  Report Type: 
  Country: None (occurrence: None)
  Receive Date: 20050322
  Receipt Date: 20050309
  Transmission Date: 20050727
  Serious: Yes (Hospitalization)
  Sender: FDA-Public Use
  Company Number: 2004095660

PATIENT
  Age: 62 Year
  Sex: Male

DRUGS (8)
  1. GEODON [Suspect]
     Indication: PSYCHOTIC DISORDER
     Dosage: 20 MG, INTRAMUSCULAR
     Route: 030
     Dates: start: 20041001, end: 20041002
  2. VALPROIC ACID [Concomitant]
  3. ESCITALOPRAM OXALATE [Concomitant]
  4. QUETIAPINE FUMARATE (QUETIAPINE FUMARATE) [Concomitant]
  5. FUROSEMIDE [Concomitant]
  6. FAMOTIDINE [Concomitant]
  7. LORAZEPAM [Concomitant]
  8. BENAZEPRIL HCL [Concomitant]

REACTIONS (1)
  - PARKINSONISM [None]
